FAERS Safety Report 25776458 (Version 1)
Quarter: 2025Q3

REPORT INFORMATION
  Report Type: Spontaneous
  Country: US (occurrence: US)
  Receive Date: 20250909
  Receipt Date: 20250909
  Transmission Date: 20251020
  Serious: No
  Sender: DOMPE FARMACEUTICI
  Company Number: US-FARMAPROD-202408-3087

PATIENT
  Sex: Female
  Weight: 74.84 kg

DRUGS (29)
  1. OXERVATE [Suspect]
     Active Substance: CENEGERMIN-BKBJ
     Indication: Neurotrophic keratopathy
     Route: 047
     Dates: start: 20240404
  2. OXERVATE [Suspect]
     Active Substance: CENEGERMIN-BKBJ
  3. OLANZAPINE [Concomitant]
     Active Substance: OLANZAPINE
  4. AMOXICILLIN [Concomitant]
     Active Substance: AMOXICILLIN
  5. VENTOLIN HFA [Concomitant]
     Active Substance: ALBUTEROL SULFATE
  6. FLUCONAZOLE [Concomitant]
     Active Substance: FLUCONAZOLE
  7. BENZONATATE [Concomitant]
     Active Substance: BENZONATATE
  8. IBUPROFEN [Concomitant]
     Active Substance: IBUPROFEN
  9. IBUPROFEN [Concomitant]
     Active Substance: IBUPROFEN
  10. BUPRENORPHINE HYDROCHLORIDE [Concomitant]
     Active Substance: BUPRENORPHINE HYDROCHLORIDE
  11. VALACYCLOVIR [Concomitant]
     Active Substance: VALACYCLOVIR HYDROCHLORIDE
  12. OLANZAPINE [Concomitant]
     Active Substance: OLANZAPINE
  13. BACLOFEN [Concomitant]
     Active Substance: BACLOFEN
  14. OFLOXACIN [Concomitant]
     Active Substance: OFLOXACIN
  15. GABAPENTIN [Concomitant]
     Active Substance: GABAPENTIN
  16. SERTRALINE HYDROCHLORIDE [Concomitant]
     Active Substance: SERTRALINE HYDROCHLORIDE
  17. GABAPENTIN [Concomitant]
     Active Substance: GABAPENTIN
  18. PANTOPRAZOLE SODIUM [Concomitant]
     Active Substance: PANTOPRAZOLE SODIUM
  19. BENZONATATE [Concomitant]
     Active Substance: BENZONATATE
  20. DEXAMETHASONE [Concomitant]
     Active Substance: DEXAMETHASONE
  21. LAMOTRIGINE [Concomitant]
     Active Substance: LAMOTRIGINE
  22. HYDROXYZINE PAMOATE [Concomitant]
     Active Substance: HYDROXYZINE PAMOATE
  23. CEFUROXIME [Concomitant]
     Active Substance: CEFUROXIME
  24. OLANZAPINE [Concomitant]
     Active Substance: OLANZAPINE
  25. CLONAZEPAM [Concomitant]
     Active Substance: CLONAZEPAM
  26. PREDNISONE [Concomitant]
     Active Substance: PREDNISONE
  27. BUSPIRONE HCL [Concomitant]
     Active Substance: BUSPIRONE HYDROCHLORIDE
  28. HYDROXYZINE PAMOATE [Concomitant]
     Active Substance: HYDROXYZINE PAMOATE
  29. XIIDRA [Concomitant]
     Active Substance: LIFITEGRAST

REACTIONS (1)
  - Therapy interrupted [Unknown]
